FAERS Safety Report 5547344-8 (Version None)
Quarter: 2007Q4

REPORT INFORMATION
  Report Type: 
  Country: None (occurrence: None)
  Receive Date: 20071211
  Receipt Date: 20071129
  Transmission Date: 20080405
  Serious: Yes (Other)
  Sender: FDA-Public Use
  Company Number: US-PFIZER INC-2007102027

PATIENT
  Sex: Male
  Weight: 118.18 kg

DRUGS (7)
  1. CHANTIX [Suspect]
     Indication: SMOKING CESSATION THERAPY
     Dates: start: 20071127, end: 20071128
  2. ALL OTHER THERAPEUTIC PRODUCTS [Interacting]
     Indication: BIPOLAR DISORDER
  3. TRAZODONE HCL [Concomitant]
  4. CARBAMAZEPINE [Concomitant]
  5. CLONAZEPAM [Concomitant]
  6. EFFEXOR [Concomitant]
  7. MIRAPEX [Concomitant]
     Indication: RESTLESS LEGS SYNDROME

REACTIONS (5)
  - DRUG INTERACTION [None]
  - HEADACHE [None]
  - MANIA [None]
  - NECK PAIN [None]
  - SOMNOLENCE [None]
